FAERS Safety Report 13581015 (Version 2)
Quarter: 2017Q2

REPORT INFORMATION
  Report Type: Spontaneous
  Country: US (occurrence: US)
  Receive Date: 20170525
  Receipt Date: 20170609
  Transmission Date: 20170830
  Serious: No
  Sender: FDA-Public Use
  Company Number: US-PFIZER INC-2017227705

PATIENT
  Age: 59 Year
  Sex: Female

DRUGS (1)
  1. ALPRAZOLAM. [Suspect]
     Active Substance: ALPRAZOLAM
     Indication: ANXIETY
     Dosage: 3X/DAY (0.5MG, IN THE MORNING, 1 IN AFTERNOON, 2 AT BEDTIME)
     Route: 048

REACTIONS (2)
  - Somnolence [Unknown]
  - Drug ineffective [Unknown]
